FAERS Safety Report 9093563 (Version 1)
Quarter: 2013Q1

REPORT INFORMATION
  Report Type: Spontaneous
  Country: US (occurrence: None)
  Receive Date: 20130213
  Receipt Date: 20130213
  Transmission Date: 20140127
  Serious: No
  Sender: FDA-Public Use
  Company Number: None

PATIENT
  Sex: Male
  Weight: 73.03 kg

DRUGS (1)
  1. LISINOPRIL [Suspect]
     Indication: RENAL DISORDER
     Dates: start: 2010, end: 2011

REACTIONS (1)
  - Unevaluable event [None]
